FAERS Safety Report 24667061 (Version 1)
Quarter: 2024Q4

REPORT INFORMATION
  Report Type: Spontaneous
  Country: DE (occurrence: DE)
  Receive Date: 20241126
  Receipt Date: 20241126
  Transmission Date: 20250115
  Serious: Yes (Hospitalization, Other)
  Sender: DAIICHI
  Company Number: DE-DSJP-DS-2024-109081-DE

PATIENT
  Sex: Male

DRUGS (1)
  1. EDOXABAN TOSYLATE [Suspect]
     Active Substance: EDOXABAN TOSYLATE
     Indication: Atrial fibrillation
     Dosage: 60 UNK, QD
     Route: 065

REACTIONS (2)
  - Cerebral ischaemia [Unknown]
  - Embolism arterial [Unknown]

NARRATIVE: CASE EVENT DATE: 20240901
